FAERS Safety Report 19864465 (Version 2)
Quarter: 2021Q4

REPORT INFORMATION
  Report Type: Other
  Country: US (occurrence: US)
  Receive Date: 20210921
  Receipt Date: 20211221
  Transmission Date: 20220303
  Serious: No
  Sender: FDA-Public Use
  Company Number: US-ACORDA-ACO_170013_2021

PATIENT
  Age: 69 Year
  Sex: Male

DRUGS (4)
  1. INBRIJA [Suspect]
     Active Substance: LEVODOPA
     Indication: On and off phenomenon
     Dosage: 42 MILLIGRAM, 2 CAPSULES AS NEEDED (DO NOT EXCEED 5 DOSES IN 1 DAY)
     Dates: start: 20210520
  2. INBRIJA [Suspect]
     Active Substance: LEVODOPA
     Indication: Parkinson^s disease
  3. IVERMECTIN [Concomitant]
     Active Substance: IVERMECTIN
     Indication: Product used for unknown indication
     Dosage: UNK
     Route: 065
  4. CARBIDOPA\LEVODOPA [Concomitant]
     Active Substance: CARBIDOPA\LEVODOPA
     Indication: Product used for unknown indication

REACTIONS (2)
  - Intentional underdose [Unknown]
  - Confusional state [Not Recovered/Not Resolved]

NARRATIVE: CASE EVENT DATE: 20210812
